FAERS Safety Report 26087109 (Version 2)
Quarter: 2025Q4

REPORT INFORMATION
  Report Type: Spontaneous
  Country: US (occurrence: US)
  Receive Date: 20251125
  Receipt Date: 20251201
  Transmission Date: 20260118
  Serious: No
  Sender: ABBVIE
  Company Number: US-ABBVIE-6563778

PATIENT
  Age: 18 Year
  Sex: Female

DRUGS (2)
  1. VRAYLAR [Suspect]
     Active Substance: CARIPRAZINE
     Indication: Major depression
     Dosage: TAKEN EVERY EVENING, FORM STRENGTH: 1.5 MILLIGRAM, LAST ADMIN DATE WAS NOV 2025
     Route: 048
     Dates: start: 20251104
  2. FLUOXETINE [Suspect]
     Active Substance: FLUOXETINE HYDROCHLORIDE
     Indication: Product used for unknown indication
     Dosage: COMBINATION OF 20 MG AND 10 MG, FORM STRENGTH: 20 MILLIGRAM AND 10 MILLIGRAM
     Route: 048

REACTIONS (2)
  - Tic [Unknown]
  - Mutism [Unknown]

NARRATIVE: CASE EVENT DATE: 20251101
